FAERS Safety Report 8002909-9 (Version None)
Quarter: 2011Q4

REPORT INFORMATION
  Report Type: 
  Country: None (occurrence: None)
  Receive Date: 20111222
  Receipt Date: 20110309
  Transmission Date: 20120403
  Serious: No
  Sender: FDA-Public Use
  Company Number: US-GLAXOSMITHKLINE-A0917371A

PATIENT
  Age: 72 Year
  Sex: Male

DRUGS (8)
  1. CRESTOR [Concomitant]
  2. ASPIRIN [Concomitant]
  3. AMLODIPINE [Concomitant]
  4. PLAVIX [Concomitant]
  5. PERI-COLACE [Concomitant]
  6. AVODART [Suspect]
     Indication: PROSTATIC DISORDER
     Dosage: .5MG AT NIGHT
     Route: 048
     Dates: start: 20081001, end: 20090301
  7. LABETALOL HCL [Concomitant]
  8. DICYCLOMINE [Concomitant]

REACTIONS (4)
  - MEDICATION RESIDUE [None]
  - DRUG INEFFECTIVE [None]
  - ABDOMINAL PAIN UPPER [None]
  - PRODUCT QUALITY ISSUE [None]
